FAERS Safety Report 16460755 (Version 2)
Quarter: 2019Q3

REPORT INFORMATION
  Report Type: Report from Study
  Country: US (occurrence: US)
  Receive Date: 20190620
  Receipt Date: 20190711
  Transmission Date: 20191004
  Serious: Yes (Other)
  Sender: FDA-Public Use
  Company Number: US-TEVA-2019-US-1063181

PATIENT
  Sex: Female

DRUGS (3)
  1. CLARAVIS [Suspect]
     Active Substance: ISOTRETINOIN
     Route: 065
     Dates: end: 20190606
  2. CLARAVIS [Suspect]
     Active Substance: ISOTRETINOIN
     Route: 065
  3. CLARAVIS [Suspect]
     Active Substance: ISOTRETINOIN
     Dosage: 40 MILLIGRAM DAILY;
     Dates: start: 20190114, end: 20190603

REACTIONS (1)
  - Unintended pregnancy [Unknown]
